FAERS Safety Report 15813793 (Version 1)
Quarter: 2019Q1

REPORT INFORMATION
  Report Type: Spontaneous
  Country: MY (occurrence: MY)
  Receive Date: 20190111
  Receipt Date: 20190111
  Transmission Date: 20190417
  Serious: Yes (Other)
  Sender: FDA-Public Use
  Company Number: MY-ALLERGAN-1901363US

PATIENT
  Age: 53 Year
  Sex: Male

DRUGS (3)
  1. VANCOMYCIN [Concomitant]
     Active Substance: VANCOMYCIN
     Indication: EYE INJURY
  2. DEX UNK [Suspect]
     Active Substance: UNSPECIFIED INGREDIENT
     Indication: EYE INJURY
     Dosage: UNKNOWN
     Route: 047
  3. FORTUM [Concomitant]
     Active Substance: CEFTAZIDIME
     Indication: EYE INJURY

REACTIONS (6)
  - Corneal thinning [Recovering/Resolving]
  - Off label use [Unknown]
  - Corneal perforation [Recovering/Resolving]
  - Keratitis fungal [Recovering/Resolving]
  - Eye infection fungal [Recovering/Resolving]
  - Endophthalmitis [Recovering/Resolving]
